FAERS Safety Report 6183571-7 (Version None)
Quarter: 2009Q2

REPORT INFORMATION
  Report Type: 
  Country: None (occurrence: None)
  Receive Date: 20090508
  Receipt Date: 20090428
  Transmission Date: 20091009
  Serious: Yes (Disabling, Other)
  Sender: FDA-Public Use
  Company Number: GB-PFIZER INC-2009199500

PATIENT
  Age: 26 Year

DRUGS (1)
  1. SOMATROPIN [Suspect]
     Indication: HYPOPITUITARISM
     Dosage: 0.6 MG, 1X/DAY
     Dates: start: 20010129, end: 20080814

REACTIONS (1)
  - MENINGIOMA [None]
